FAERS Safety Report 10011891 (Version 2)
Quarter: 2014Q2

REPORT INFORMATION
  Report Type: Report from Study
  Country: VE (occurrence: VE)
  Receive Date: 20140314
  Receipt Date: 20140501
  Transmission Date: 20141212
  Serious: Yes (Other)
  Sender: FDA-Public Use
  Company Number: VE-ABBVIE-14P-178-1212616-00

PATIENT
  Age: 41 Year
  Sex: Male

DRUGS (3)
  1. HUMIRA [Suspect]
     Indication: PSORIASIS
     Route: 058
     Dates: start: 20120214, end: 201312
  2. HUMIRA [Suspect]
     Dates: start: 201404
  3. CENTRUM [Concomitant]
     Indication: ASTHENIA
     Route: 048
     Dates: start: 201404

REACTIONS (2)
  - Tuberculin test positive [Recovered/Resolved]
  - Asthenia [Unknown]
